FAERS Safety Report 15492866 (Version 5)
Quarter: 2020Q3

REPORT INFORMATION
  Report Type: Spontaneous
  Country: CA (occurrence: CA)
  Receive Date: 20181012
  Receipt Date: 20200817
  Transmission Date: 20201102
  Serious: Yes (Other)
  Sender: FDA-Public Use
  Company Number: CA-CELLTRION INC.-2017CA017663

PATIENT

DRUGS (49)
  1. INFLECTRA [Suspect]
     Active Substance: INFLIXIMAB-DYYB
     Dosage: 400 MG, EVERY 8 WEEKS
     Route: 042
     Dates: start: 20180216, end: 20180216
  2. INFLECTRA [Suspect]
     Active Substance: INFLIXIMAB-DYYB
     Dosage: 400 MG, EVERY 8 WEEKS
     Route: 042
     Dates: start: 20180216, end: 20180216
  3. INFLECTRA [Suspect]
     Active Substance: INFLIXIMAB-DYYB
     Dosage: 400 MG, EVERY 0, 2, 6 WEEKS, THEN EVERY 8 WEEKS
     Route: 042
     Dates: start: 20200611
  4. CYCLOSPORIN [Concomitant]
     Active Substance: CYCLOSPORINE
     Dosage: 1 DF, 2X/DAY (100 MG) (FIRST FILL:03FEB2016)
     Route: 048
     Dates: start: 201510
  5. CLONAZEPAM. [Concomitant]
     Active Substance: CLONAZEPAM
     Dosage: 1 MG Q (EVERY) HS (AT BED TIME) (FILLED 01SEP2015)
     Route: 048
     Dates: start: 20150901
  6. HISTATIN [Concomitant]
     Dosage: 4?6 ML, 4 TIMES A DAY (FILLED 23OCT2015)
     Route: 048
     Dates: start: 20151023
  7. INFLECTRA [Suspect]
     Active Substance: INFLIXIMAB-DYYB
     Dosage: 400 MG, EVERY 0, 2, 6 WEEKS, THEN EVERY 8 WEEKS
     Route: 042
     Dates: start: 20180928, end: 20180928
  8. INFLECTRA [Suspect]
     Active Substance: INFLIXIMAB-DYYB
     Dosage: 400 MG, EVERY 0, 2, 6 WEEKS, THEN EVERY 8 WEEKS
     Route: 042
     Dates: start: 20181122, end: 20181122
  9. INFLECTRA [Suspect]
     Active Substance: INFLIXIMAB-DYYB
     Dosage: 400 MG, EVERY 0, 2, 6 WEEKS, THEN EVERY 8 WEEKS
     Route: 042
     Dates: start: 20200416, end: 20200416
  10. PROPANOLOL [Concomitant]
     Active Substance: PROPRANOLOL HYDROCHLORIDE
     Dosage: 20 MG DAILY (FILLED 03SEP2016)
     Route: 048
  11. ZOPICLONE [Concomitant]
     Active Substance: ZOPICLONE
     Dosage: 7.5 MG Q(EVERY) HS (AT BED TIME), PRN (AS NEEDED) (FILLED 01SEP2015)
     Route: 065
  12. CLONAZEPAM. [Concomitant]
     Active Substance: CLONAZEPAM
     Dosage: 1 MG Q (EVERY) HS (AT BED TIME) (FILLED 01SEP2015)
     Route: 048
  13. FLUCONAZOLE. [Concomitant]
     Active Substance: FLUCONAZOLE
     Dosage: 3 DF, SINGLE ((150 MG) AS A SINGLE DOSE)) (FILLED 03NOV2015)
     Route: 048
  14. BENADRYL [Concomitant]
     Active Substance: DIPHENHYDRAMINE HYDROCHLORIDE
     Dosage: 25 MG
     Dates: start: 20200807, end: 20200807
  15. INFLECTRA [Suspect]
     Active Substance: INFLIXIMAB-DYYB
     Dosage: 400 MG, EVERY 8 WEEKS
     Route: 042
     Dates: start: 20180606, end: 20180606
  16. PROPANOLOL [Concomitant]
     Active Substance: PROPRANOLOL HYDROCHLORIDE
     Dosage: 10 MG BID (2X/DAY) (FILLED 03SEP2016)
     Route: 048
     Dates: start: 20160203
  17. PROPANOLOL [Concomitant]
     Active Substance: PROPRANOLOL HYDROCHLORIDE
     Dosage: 20 MG DAILY
     Route: 048
  18. QUETIAPINE. [Concomitant]
     Active Substance: QUETIAPINE
     Dosage: 25 MG, 1 TABLET EVERY BEDTIME (FILLED 01SEP2015)
     Route: 048
     Dates: start: 20150901
  19. NAPROXEN. [Concomitant]
     Active Substance: NAPROXEN
     Dosage: 500 MG BID (2X/DAY) (FILLED 16OCT2015)
     Route: 048
     Dates: start: 20151016
  20. HYDROCORTISONE. [Concomitant]
     Active Substance: HYDROCORTISONE
     Dosage: 100 MG
     Dates: start: 20200807, end: 20200807
  21. INFLECTRA [Suspect]
     Active Substance: INFLIXIMAB-DYYB
     Dosage: 400 MG, EVERY 8 WEEKS
     Route: 042
     Dates: start: 20171023, end: 20171023
  22. INFLECTRA [Suspect]
     Active Substance: INFLIXIMAB-DYYB
     Dosage: 400 MG, EVERY 0, 2, 6 WEEKS, THEN EVERY 8 WEEKS
     Route: 042
     Dates: start: 20200611
  23. BUPROPION. [Concomitant]
     Active Substance: BUPROPION
     Dosage: 1 DF, 1X/DAY (300 MG EVERY MORNING) (FIRST FILL:01SEP2015)
     Route: 048
  24. ACZONE [Concomitant]
     Active Substance: DAPSONE
     Dosage: 5% (2X/DAY) (FILLED 18NOV2015)
     Route: 061
  25. MACRODANTIN [Concomitant]
     Active Substance: NITROFURANTOIN
     Indication: URINARY TRACT INFECTION
     Dosage: 100 MG DAILY AT NIGHT
  26. PROPANOLOL [Concomitant]
     Active Substance: PROPRANOLOL HYDROCHLORIDE
     Dosage: 10 MG, 2X/DAY (FILLED 03SEP2016)
     Route: 048
  27. ZOPICLONE [Concomitant]
     Active Substance: ZOPICLONE
     Dosage: 7.5 MG Q(EVERY) HS (AT BED TIME), PRN (AS NEEDED) (FILLED 01SEP2015)
     Route: 065
     Dates: start: 20150901
  28. FLUCONAZOLE. [Concomitant]
     Active Substance: FLUCONAZOLE
     Dosage: 50 MG, 3 TABLETS (150MG) AS A SINGLE DOSE
     Dates: start: 20151103
  29. INFLECTRA [Suspect]
     Active Substance: INFLIXIMAB-DYYB
     Dosage: 400 MG, EVERY 0, 2, 6 WEEKS, THEN EVERY 8 WEEKS
     Route: 042
     Dates: start: 20200807
  30. BUPROPION. [Concomitant]
     Active Substance: BUPROPION
     Dosage: 300 MG, 1 TABLET EVERY MORNING (FIRST FILL: 01SEP2015)
     Route: 048
     Dates: start: 20150901
  31. QUETIAPINE. [Concomitant]
     Active Substance: QUETIAPINE
     Dosage: 1 DF, 1X/DAY (EVERY BEDTIME) (FILLED 01SEP2015)
     Route: 048
  32. NAPROXEN. [Concomitant]
     Active Substance: NAPROXEN
     Dosage: 500 MG, 2X/DAY (FILLED 16OCT2015)
     Route: 048
  33. SEROQUEL [Concomitant]
     Active Substance: QUETIAPINE FUMARATE
     Dosage: 25 MG Q(EVERY) HS (BEFORE SLEEP)
     Route: 048
  34. MACRODANTIN [Concomitant]
     Active Substance: NITROFURANTOIN
     Dosage: 100 MG DAILY AT NIGHT
     Route: 065
  35. PROGESTERONE HEPTANOATE [Concomitant]
     Dosage: 2.5 MG DAILY
  36. BENADRYL [Concomitant]
     Active Substance: DIPHENHYDRAMINE HYDROCHLORIDE
     Indication: PREMEDICATION
     Dosage: 50 MG
     Route: 042
     Dates: start: 20200611, end: 20200611
  37. INFLECTRA [Suspect]
     Active Substance: INFLIXIMAB-DYYB
     Indication: BEHCET^S SYNDROME
     Dosage: 400 MG, EVERY 8 WEEKS
     Route: 042
     Dates: start: 20161019, end: 20161019
  38. CYCLOSPORIN [Concomitant]
     Active Substance: CYCLOSPORINE
     Dosage: 100 MG, 2X/DAY (FIRST FILL: 03FEB2016)
     Route: 048
     Dates: start: 201510
  39. CIPRALEX [Concomitant]
     Active Substance: ESCITALOPRAM OXALATE
     Dosage: 20 MG Q(EVERY) AM (MORNING) (FILLED 01SEP2015)
     Route: 048
     Dates: start: 20150901
  40. ACZONE [Concomitant]
     Active Substance: DAPSONE
     Dosage: 5% (2X/DAY) (FILLED 18NOV2015)
     Route: 061
     Dates: start: 20151118
  41. HISTATIN [Concomitant]
     Dosage: 4?6 ML, 4 TIMES A DAY (FILLED 23OCT2015)
     Route: 048
  42. WELLBUTRIN XL [Concomitant]
     Active Substance: BUPROPION HYDROCHLORIDE
     Dosage: 300 MG Q(EVERY)AM (MORNING)
     Route: 048
  43. PROGESTERONE. [Concomitant]
     Active Substance: PROGESTERONE
     Dosage: 2.5 MG, DAILY
     Route: 065
  44. HYDROCORTISONE. [Concomitant]
     Active Substance: HYDROCORTISONE
     Indication: PREMEDICATION
     Dosage: 100 MG
     Route: 042
     Dates: start: 20200611, end: 20200611
  45. INFLECTRA [Suspect]
     Active Substance: INFLIXIMAB-DYYB
     Dosage: 400 MG, EVERY 8 WEEKS
     Route: 042
     Dates: start: 20171227, end: 20171227
  46. INFLECTRA [Suspect]
     Active Substance: INFLIXIMAB-DYYB
     Dosage: 400 MG, EVERY 8 WEEKS
     Route: 042
     Dates: start: 20180413, end: 20180413
  47. CIPRALEX [Concomitant]
     Active Substance: ESCITALOPRAM OXALATE
     Dosage: 20 MG Q(EVERY) AM (MORNING) (FILLED 01SEP2015)
     Route: 048
  48. PREDNISONE. [Concomitant]
     Active Substance: PREDNISONE
     Dosage: 50 MG DAILY AND DECREASING DOSES (FILLED 16NOV2015)
     Dates: start: 20151116
  49. PREDNISONE. [Concomitant]
     Active Substance: PREDNISONE
     Dosage: 50 MG DAILY AND DECREASING DOSES (FILLED 16NOV2015)
     Route: 065

REACTIONS (15)
  - Sleep attacks [Recovered/Resolved]
  - Infection [Unknown]
  - Blood pressure increased [Unknown]
  - Myocardial infarction [Unknown]
  - Eye infection [Unknown]
  - Product use in unapproved indication [Unknown]
  - Off label use [Unknown]
  - Intentional product use issue [Unknown]
  - Arthralgia [Unknown]
  - Condition aggravated [Unknown]
  - Illness [Unknown]
  - Muscle strain [Unknown]
  - Cystitis [Recovering/Resolving]
  - Off label use [Unknown]
  - Back pain [Not Recovered/Not Resolved]

NARRATIVE: CASE EVENT DATE: 20161019
